FAERS Safety Report 18707791 (Version 1)
Quarter: 2021Q1

REPORT INFORMATION
  Report Type: Spontaneous
  Country: US (occurrence: US)
  Receive Date: 20210106
  Receipt Date: 20210106
  Transmission Date: 20210419
  Serious: Yes (Other)
  Sender: FDA-Public Use
  Company Number: US-PFIZER INC-2020491416

PATIENT
  Age: 62 Year
  Sex: Female

DRUGS (2)
  1. INLYTA [Suspect]
     Active Substance: AXITINIB
     Dosage: 5 MG
     Dates: start: 20200827
  2. INLYTA [Suspect]
     Active Substance: AXITINIB
     Indication: NEOPLASM
     Dosage: 5 MG
     Dates: start: 20200826

REACTIONS (1)
  - Dental cyst [Unknown]

NARRATIVE: CASE EVENT DATE: 2020
